FAERS Safety Report 11197678 (Version 1)
Quarter: 2015Q2

REPORT INFORMATION
  Report Type: Spontaneous
  Country: ID (occurrence: ID)
  Receive Date: 20150617
  Receipt Date: 20150617
  Transmission Date: 20150821
  Serious: Yes (Other)
  Sender: FDA-Public Use
  Company Number: ID-ELI_LILLY_AND_COMPANY-ID201503010293

PATIENT
  Sex: Male
  Weight: 79 kg

DRUGS (2)
  1. HUMULIN R [Suspect]
     Active Substance: INSULIN HUMAN
     Dosage: 20 U, OTHER
     Route: 065
     Dates: start: 20150610
  2. HUMULIN R [Suspect]
     Active Substance: INSULIN HUMAN
     Indication: PRODUCT USED FOR UNKNOWN INDICATION
     Dosage: 10 U, TID
     Route: 065

REACTIONS (6)
  - Weight decreased [Unknown]
  - Blood glucose increased [Unknown]
  - Product tampering [Unknown]
  - Fatigue [Unknown]
  - Drug ineffective [Unknown]
  - Blood glucose increased [Unknown]

NARRATIVE: CASE EVENT DATE: 20150520
